FAERS Safety Report 13671029 (Version 1)
Quarter: 2017Q2

REPORT INFORMATION
  Report Type: Spontaneous
  Country: US (occurrence: US)
  Receive Date: 20170620
  Receipt Date: 20170620
  Transmission Date: 20170830
  Serious: No
  Sender: FDA-Public Use
  Company Number: US-ROCHE-1561311

PATIENT
  Sex: Female

DRUGS (7)
  1. XELODA [Suspect]
     Active Substance: CAPECITABINE
     Indication: METASTASES TO BONE
  2. TYKERB [Concomitant]
     Active Substance: LAPATINIB DITOSYLATE
     Indication: METASTASES TO LIVER
  3. XELODA [Suspect]
     Active Substance: CAPECITABINE
     Indication: HER-2 POSITIVE BREAST CANCER
     Dosage: 2-500MG TABS BID FOR 21 DAYS AND OFF SEVEN DAYS
     Route: 048
  4. TYKERB [Concomitant]
     Active Substance: LAPATINIB DITOSYLATE
     Indication: METASTASES TO BONE
  5. XELODA [Suspect]
     Active Substance: CAPECITABINE
     Indication: METASTASES TO LIVER
  6. SYNTHROID [Concomitant]
     Active Substance: LEVOTHYROXINE SODIUM
     Indication: HYPOTHYROIDISM
     Dosage: 0.135 MCG EVERY AM
     Route: 048
  7. TYKERB [Concomitant]
     Active Substance: LAPATINIB DITOSYLATE
     Indication: HER-2 POSITIVE BREAST CANCER
     Route: 048

REACTIONS (8)
  - Weight increased [Not Recovered/Not Resolved]
  - Nausea [Unknown]
  - Diarrhoea [Unknown]
  - Fatigue [Unknown]
  - Decreased appetite [Unknown]
  - Neuropathy peripheral [Not Recovered/Not Resolved]
  - Dysgeusia [Unknown]
  - Asthenia [Unknown]
